FAERS Safety Report 7688568-3 (Version None)
Quarter: 2011Q3

REPORT INFORMATION
  Report Type: 
  Country: None (occurrence: None)
  Receive Date: 20110817
  Receipt Date: 20110805
  Transmission Date: 20111222
  Serious: Yes (Hospitalization)
  Sender: FDA-Public Use
  Company Number: US-SANOFI-AVENTIS-2011SA044557

PATIENT
  Age: 83 Year
  Sex: Female
  Weight: 59 kg

DRUGS (8)
  1. METFORMIN HCL [Concomitant]
  2. DRONEDARONE HCL [Suspect]
     Indication: ATRIAL FIBRILLATION
     Route: 048
     Dates: start: 20101222
  3. LISINOPRIL [Concomitant]
     Route: 065
  4. GLUCOVANCE [Concomitant]
     Route: 065
  5. POTASSIUM CHLORIDE [Concomitant]
  6. SYNTHROID [Concomitant]
  7. COREG [Concomitant]
     Route: 065
  8. FUROSEMIDE [Concomitant]
     Route: 065

REACTIONS (1)
  - CARDIAC FAILURE [None]
